FAERS Safety Report 8389402-9 (Version None)
Quarter: 2012Q2

REPORT INFORMATION
  Report Type: 
  Country: None (occurrence: None)
  Receive Date: 20120528
  Receipt Date: 20120522
  Transmission Date: 20120825
  Serious: Yes (Other)
  Sender: FDA-Public Use
  Company Number: US-SHIRE-ALL1-2012-02613

PATIENT
  Sex: Male

DRUGS (1)
  1. VPRIV [Suspect]
     Indication: GAUCHER'S DISEASE
     Dosage: UNK, UNKNOWN
     Route: 041

REACTIONS (1)
  - DEEP VEIN THROMBOSIS [None]
